FAERS Safety Report 11674057 (Version 1)
Quarter: 2015Q4

REPORT INFORMATION
  Report Type: Spontaneous
  Country: US (occurrence: US)
  Receive Date: 20151027
  Receipt Date: 20151027
  Transmission Date: 20160304
  Serious: No
  Sender: FDA-Public Use
  Company Number: US-ELI_LILLY_AND_COMPANY-US201008001606

PATIENT
  Sex: Female

DRUGS (2)
  1. NEXIUM [Concomitant]
     Active Substance: ESOMEPRAZOLE MAGNESIUM
     Indication: DYSPEPSIA
  2. FORTEO [Suspect]
     Active Substance: TERIPARATIDE
     Indication: OSTEOPOROSIS
     Dosage: 20 UG, DAILY (1/D)
     Dates: start: 20090805

REACTIONS (7)
  - Pain [Recovering/Resolving]
  - Oesophageal disorder [Unknown]
  - Sleep disorder [Unknown]
  - Dyspepsia [Recovering/Resolving]
  - Chest pain [Unknown]
  - Stress [Unknown]
  - Eating disorder [Recovered/Resolved]
